FAERS Safety Report 4606099-1 (Version None)
Quarter: 2005Q1

REPORT INFORMATION
  Report Type: 
  Country: None (occurrence: None)
  Receive Date: 20050311
  Receipt Date: 20050217
  Transmission Date: 20050727
  Serious: Yes (Hospitalization)
  Sender: FDA-Public Use
  Company Number: PHBS2005AT03309

PATIENT
  Age: 63 Year
  Sex: Male
  Weight: 83 kg

DRUGS (14)
  1. ZOLEDRONATE [Suspect]
     Indication: MULTIPLE MYELOMA
     Dosage: 4 MG, QMO
     Route: 042
     Dates: start: 20031201, end: 20050204
  2. PANTOPRAZOLE [Concomitant]
     Indication: PROPHYLAXIS
     Dosage: 40 MG, QD
     Route: 048
  3. CITALOPRAM [Concomitant]
     Indication: DEPRESSION
     Dosage: 30 MG, QD
     Route: 048
  4. MIRTAZAPINE [Concomitant]
     Indication: DEPRESSION
     Dosage: 30 MG, QD
     Route: 048
  5. LEVOMEPROMAZINE [Concomitant]
     Indication: MUSCLE SPASMS
     Dosage: 12.5 MG, QD
     Route: 048
  6. TAMSULOSIN [Concomitant]
     Indication: BENIGN PROSTATIC HYPERPLASIA
     Dosage: 0.4 MG, QD
     Route: 048
  7. ENOXAPARIN [Concomitant]
     Indication: PROPHYLAXIS
     Dosage: 40 MG, QD
     Route: 058
  8. RAMIPRIL [Concomitant]
     Indication: AORTIC DISORDER
     Dosage: 1.25 MG, QD
     Route: 048
     Dates: start: 20041109
  9. METOPROLOL [Concomitant]
     Indication: AORTIC DISORDER
     Dosage: 25 MG, QD
     Route: 048
     Dates: start: 20041109
  10. FUROSEMIDE [Concomitant]
     Dosage: 40 MG, QD
     Route: 048
     Dates: start: 20041109
  11. NANDROLONE DECANOATE [Concomitant]
     Dosage: 25 MG, QD
     Route: 058
     Dates: start: 20050110, end: 20050110
  12. PREDNISONE [Concomitant]
     Indication: MULTIPLE MYELOMA
     Route: 065
     Dates: end: 20050202
  13. INTRON A [Concomitant]
     Indication: MULTIPLE MYELOMA
     Dosage: 3 MIU, TIW
     Route: 058
     Dates: start: 20050201
  14. INTRON A [Concomitant]
     Dosage: 3 MIU, TIW
     Route: 058
     Dates: start: 20050111, end: 20050202

REACTIONS (3)
  - DYSPNOEA [None]
  - HYPERSENSITIVITY [None]
  - HYPERVENTILATION [None]
